FAERS Safety Report 25680977 (Version 1)
Quarter: 2025Q3

REPORT INFORMATION
  Report Type: Spontaneous
  Country: US (occurrence: US)
  Receive Date: 20250814
  Receipt Date: 20250814
  Transmission Date: 20251020
  Serious: Yes (Other)
  Sender: MYLAN
  Company Number: US-MYLANLABS-2025M1068831

PATIENT
  Sex: Male

DRUGS (2)
  1. FINGOLIMOD [Suspect]
     Active Substance: FINGOLIMOD
     Indication: Multiple sclerosis
     Dosage: 0.5 MILLIGRAM, QD
  2. FINGOLIMOD [Suspect]
     Active Substance: FINGOLIMOD

REACTIONS (4)
  - Multiple sclerosis [Recovering/Resolving]
  - Rebound effect [Recovering/Resolving]
  - Intentional product misuse [Recovering/Resolving]
  - Treatment noncompliance [Recovering/Resolving]
